FAERS Safety Report 13823930 (Version 1)
Quarter: 2017Q3

REPORT INFORMATION
  Report Type: Spontaneous
  Country: US (occurrence: US)
  Receive Date: 20170801
  Receipt Date: 20170801
  Transmission Date: 20171127
  Serious: Yes (Hospitalization)
  Sender: FDA-Public Use
  Company Number: None

PATIENT
  Age: 8 Year
  Sex: Male
  Weight: 28.12 kg

DRUGS (4)
  1. PROPAFOL [Suspect]
     Active Substance: PROPOFOL
     Indication: CROHN^S DISEASE
     Dosage: FREQUENCY - INCREMENTS
     Route: 042
     Dates: start: 20170728
  2. PROPAFOL [Suspect]
     Active Substance: PROPOFOL
     Indication: ENDOSCOPY
     Dosage: FREQUENCY - INCREMENTS
     Route: 042
     Dates: start: 20170728
  3. VERSED [Concomitant]
     Active Substance: MIDAZOLAM HYDROCHLORIDE
  4. PROPAFOL [Suspect]
     Active Substance: PROPOFOL
     Indication: SEDATION
     Dosage: FREQUENCY - INCREMENTS
     Route: 042
     Dates: start: 20170728

REACTIONS (1)
  - Pancreatitis acute [None]

NARRATIVE: CASE EVENT DATE: 20170728
